FAERS Safety Report 11026158 (Version 1)
Quarter: 2015Q2

REPORT INFORMATION
  Report Type: Spontaneous
  Country: US (occurrence: US)
  Receive Date: 20150414
  Receipt Date: 20150414
  Transmission Date: 20150821
  Serious: No
  Sender: FDA-Public Use
  Company Number: US-ASTRAZENECA-2015SE32755

PATIENT
  Age: 81 Year
  Sex: Female
  Weight: 71.2 kg

DRUGS (5)
  1. SYMBICORT [Suspect]
     Active Substance: BUDESONIDE\FORMOTEROL FUMARATE DIHYDRATE
     Indication: GOITRE
     Dosage: 1 PUFF AT NIGHT
     Route: 055
     Dates: start: 201312
  2. SYMBICORT [Suspect]
     Active Substance: BUDESONIDE\FORMOTEROL FUMARATE DIHYDRATE
     Indication: GOITRE
     Dosage: 160/4.5 MG, 1 PUFFS, BID
     Route: 055
  3. ATORVASTATIN [Concomitant]
     Active Substance: ATORVASTATIN
     Indication: BLOOD CHOLESTEROL
     Route: 065
     Dates: start: 2010
  4. SYMBICORT [Suspect]
     Active Substance: BUDESONIDE\FORMOTEROL FUMARATE DIHYDRATE
     Indication: WHEEZING
     Dosage: 1 PUFF AT NIGHT
     Route: 055
     Dates: start: 201312
  5. SYMBICORT [Suspect]
     Active Substance: BUDESONIDE\FORMOTEROL FUMARATE DIHYDRATE
     Indication: WHEEZING
     Dosage: 160/4.5 MG, 1 PUFFS, BID
     Route: 055

REACTIONS (4)
  - Device misuse [Unknown]
  - Lung disorder [Unknown]
  - Goitre [Unknown]
  - Product use issue [Unknown]

NARRATIVE: CASE EVENT DATE: 201312
